FAERS Safety Report 25092482 (Version 2)
Quarter: 2025Q1

REPORT INFORMATION
  Report Type: Spontaneous
  Country: GR (occurrence: GR)
  Receive Date: 20250319
  Receipt Date: 20250327
  Transmission Date: 20250409
  Serious: Yes (Other)
  Sender: ROCHE
  Company Number: GR-002147023-NVSC2025GR040464

PATIENT
  Age: 77 Year
  Sex: Female

DRUGS (6)
  1. XOLAIR [Suspect]
     Active Substance: OMALIZUMAB
     Indication: Urticaria
     Dosage: 300 MG, QMO (2X150MG)
     Route: 058
     Dates: start: 202404
  2. XOLAIR [Suspect]
     Active Substance: OMALIZUMAB
     Indication: Autoimmune blistering disease
  3. XOLAIR [Suspect]
     Active Substance: OMALIZUMAB
     Indication: Erythema
  4. XOLAIR [Suspect]
     Active Substance: OMALIZUMAB
     Indication: Pruritus
  5. IRBESARTAN [Concomitant]
     Active Substance: IRBESARTAN
     Indication: Product used for unknown indication
     Dosage: UNK
     Route: 065
  6. LOPRESSOR [Concomitant]
     Active Substance: METOPROLOL TARTRATE
     Indication: Product used for unknown indication
     Dosage: UNK (1/8 OF THE PILL)
     Route: 065

REACTIONS (12)
  - Mouth swelling [Recovered/Resolved]
  - Drug hypersensitivity [Recovered/Resolved]
  - Erythema [Unknown]
  - Off label use [Unknown]
  - Pruritus [Unknown]
  - Chest discomfort [Recovered/Resolved]
  - Asthma [Recovered/Resolved]
  - Oropharyngeal swelling [Recovered/Resolved]
  - Gingival erythema [Recovered/Resolved]
  - Muscle spasms [Recovered/Resolved]
  - Allergic oedema [Recovered/Resolved]
  - Swelling [Recovered/Resolved]

NARRATIVE: CASE EVENT DATE: 20240401
